FAERS Safety Report 16218641 (Version 6)
Quarter: 2020Q3

REPORT INFORMATION
  Report Type: Spontaneous
  Country: US (occurrence: US)
  Receive Date: 20190419
  Receipt Date: 20200824
  Transmission Date: 20201102
  Serious: No
  Sender: FDA-Public Use
  Company Number: US-PFIZER INC-2018469586

PATIENT
  Age: 66 Year
  Sex: Female

DRUGS (2)
  1. IBRANCE [Suspect]
     Active Substance: PALBOCICLIB
     Indication: BREAST CANCER METASTATIC
     Dosage: 125 MG, CYCLIC
     Dates: start: 201809
  2. FULVESTRANT. [Concomitant]
     Active Substance: FULVESTRANT
     Dosage: UNK

REACTIONS (7)
  - Fatigue [Unknown]
  - Glossodynia [Unknown]
  - Tongue disorder [Unknown]
  - Accidental overdose [Unknown]
  - Swollen tongue [Unknown]
  - Intentional product misuse [Unknown]
  - Glossitis [Unknown]

NARRATIVE: CASE EVENT DATE: 201904
